FAERS Safety Report 20058989 (Version 1)
Quarter: 2021Q4

REPORT INFORMATION
  Report Type: Spontaneous
  Country: CN (occurrence: CN)
  Receive Date: 20211111
  Receipt Date: 20211111
  Transmission Date: 20220303
  Serious: Yes (Hospitalization)
  Sender: FDA-Public Use
  Company Number: CN-NAPPMUNDI-GBR-2021-0092061

PATIENT
  Age: 72 Year
  Sex: Female

DRUGS (2)
  1. OXYCODONE HYDROCHLORIDE [Suspect]
     Active Substance: OXYCODONE HYDROCHLORIDE
     Indication: Cancer pain
     Dosage: 20 MG, Q12H
     Route: 048
     Dates: start: 20211005, end: 20211010
  2. FENTANYL [Suspect]
     Active Substance: FENTANYL
     Indication: Cancer pain
     Dosage: 8.25 MG, Q3D
     Route: 061
     Dates: start: 20211004, end: 20211010

REACTIONS (4)
  - Gastrooesophageal reflux disease [Recovering/Resolving]
  - Hypophagia [Unknown]
  - Nausea [Recovering/Resolving]
  - Vomiting [Recovering/Resolving]

NARRATIVE: CASE EVENT DATE: 20211006
